FAERS Safety Report 5476986-3 (Version None)
Quarter: 2007Q4

REPORT INFORMATION
  Report Type: 
  Country: None (occurrence: None)
  Receive Date: 20071003
  Receipt Date: 20071003
  Transmission Date: 20080405
  Serious: Yes (Hospitalization)
  Sender: FDA-Public Use
  Company Number: None

PATIENT

DRUGS (5)
  1. CYCLOPHOSPHAMIDE [Suspect]
     Dosage: 1700 MG
     Dates: start: 20061212, end: 20070702
  2. CYTARABINE [Suspect]
     Dosage: 10200 MG
     Dates: end: 20070705
  3. G-CSF(FILGRASTIN, AMGEN)(614629) [Suspect]
     Dosage: 3000 MCG
     Dates: end: 20070717
  4. L-ASPARAGINASE(109229) [Suspect]
     Dosage: 10000 UNIT
     Dates: end: 20070716
  5. METHOTREXATE [Suspect]
     Dosage: 15 MG
     Dates: end: 20070702

REACTIONS (10)
  - BACTERIAL INFECTION [None]
  - BALANCE DISORDER [None]
  - BLOOD CULTURE POSITIVE [None]
  - BLOOD PRESSURE DIASTOLIC DECREASED [None]
  - DIZZINESS [None]
  - FEBRILE NEUTROPENIA [None]
  - HEADACHE [None]
  - HEART RATE INCREASED [None]
  - PYREXIA [None]
  - RESPIRATORY RATE INCREASED [None]
